FAERS Safety Report 19479806 (Version 1)
Quarter: 2021Q3

REPORT INFORMATION
  Report Type: Spontaneous
  Country: US (occurrence: US)
  Receive Date: 20210701
  Receipt Date: 20210701
  Transmission Date: 20211014
  Serious: Yes (Death)
  Sender: FDA-Public Use
  Company Number: US-ROCHE-2860914

PATIENT
  Age: 87 Year
  Sex: Male

DRUGS (12)
  1. CELEBREX [Concomitant]
     Active Substance: CELECOXIB
  2. SIMVASTATIN. [Concomitant]
     Active Substance: SIMVASTATIN
  3. LOSARTAN AND HYDROCHLOROTHIAZIDE [Concomitant]
     Active Substance: HYDROCHLOROTHIAZIDE\LOSARTAN POTASSIUM
     Dosage: 100?25
  4. HYDROCODONE BITARTRATE AND ACETAMINOPHEN [Concomitant]
     Active Substance: ACETAMINOPHEN\HYDROCODONE BITARTRATE
     Dosage: 5?325 MG
  5. LUCENTIS [Suspect]
     Active Substance: RANIBIZUMAB
  6. LUCENTIS [Suspect]
     Active Substance: RANIBIZUMAB
  7. LUCENTIS [Suspect]
     Active Substance: RANIBIZUMAB
     Indication: NEOVASCULAR AGE-RELATED MACULAR DEGENERATION
     Route: 050
  8. LUCENTIS [Suspect]
     Active Substance: RANIBIZUMAB
     Indication: CHOROIDAL NEOVASCULARISATION
  9. PIOGLITAZONE. [Concomitant]
     Active Substance: PIOGLITAZONE
  10. LUCENTIS [Suspect]
     Active Substance: RANIBIZUMAB
  11. LUCENTIS [Suspect]
     Active Substance: RANIBIZUMAB
  12. MELOXICAM. [Concomitant]
     Active Substance: MELOXICAM

REACTIONS (1)
  - Death [Fatal]

NARRATIVE: CASE EVENT DATE: 20210616
